FAERS Safety Report 19533177 (Version 1)
Quarter: 2021Q3

REPORT INFORMATION
  Report Type: Spontaneous
  Country: TR (occurrence: TR)
  Receive Date: 20210713
  Receipt Date: 20210713
  Transmission Date: 20211014
  Serious: Yes (Other)
  Sender: FDA-Public Use
  Company Number: TR-SA-2021SA225276

PATIENT
  Age: 67 Year
  Sex: Male

DRUGS (1)
  1. TAMPROST [Suspect]
     Active Substance: TAMSULOSIN HYDROCHLORIDE
     Dosage: UNK
     Route: 065

REACTIONS (3)
  - Tinnitus [Unknown]
  - Dizziness [Unknown]
  - Mental impairment [Unknown]
